FAERS Safety Report 13291275 (Version 1)
Quarter: 2017Q1

REPORT INFORMATION
  Report Type: Spontaneous
  Country: FR (occurrence: FR)
  Receive Date: 20170303
  Receipt Date: 20170303
  Transmission Date: 20170428
  Serious: Yes (Other)
  Sender: FDA-Public Use
  Company Number: FR-TEVA-742231ROM

PATIENT
  Age: 43 Year
  Sex: Female

DRUGS (4)
  1. LEVOTHYROXINE SODIUM. [Concomitant]
     Active Substance: LEVOTHYROXINE SODIUM
     Dosage: 112.5 MICROGRAM DAILY; LONG-STANDING TREATMENT
     Route: 048
  2. ESTREVA 0.1 % [Suspect]
     Active Substance: ESTRADIOL
     Indication: HYPERANDROGENISM
     Dosage: 1 DOSAGE FORMS DAILY; LONG-STANDING TREATMENT
     Route: 062
     Dates: end: 201609
  3. ANDROCUR [Suspect]
     Active Substance: CYPROTERONE ACETATE
     Indication: HYPERANDROGENISM
     Dosage: 1 DOSAGE FORMS DAILY; LONG-STANDING TREATMENT STARTED MORE THAN 20 YEARS EARLIER
     Route: 048
     Dates: end: 201609
  4. GUTRON 2.5 MG [Concomitant]
     Active Substance: MIDODRINE
     Dosage: 1 DOSAGE FORMS DAILY;
     Route: 048
     Dates: start: 2011

REACTIONS (1)
  - Meningioma [Not Recovered/Not Resolved]

NARRATIVE: CASE EVENT DATE: 201608
